FAERS Safety Report 8165232-8 (Version None)
Quarter: 2012Q1

REPORT INFORMATION
  Report Type: 
  Country: None (occurrence: None)
  Receive Date: 20120221
  Receipt Date: 20120210
  Transmission Date: 20120608
  Serious: Yes (Hospitalization)
  Sender: FDA-Public Use
  Company Number: GER/UKI/12/0023003

PATIENT
  Age: 43 Year
  Sex: Female

DRUGS (4)
  1. DOXYCYCLINE [Concomitant]
  2. VENTOLIN [Concomitant]
  3. SYMBICIRT (BUDESONIDE W/FORMOTEROL FUMARATE) [Concomitant]
  4. LEVOFLOXACIN [Suspect]
     Indication: LOWER RESPIRATORY TRACT INFECTION
     Dosage: 500 MG, ORAL
     Route: 048
     Dates: start: 20111220, end: 20111223

REACTIONS (4)
  - COGNITIVE DISORDER [None]
  - CONFUSIONAL STATE [None]
  - HALLUCINATIONS, MIXED [None]
  - DISORIENTATION [None]
